FAERS Safety Report 18219455 (Version 2)
Quarter: 2020Q4

REPORT INFORMATION
  Report Type: Report from Study
  Country: US (occurrence: US)
  Receive Date: 20200901
  Receipt Date: 20201012
  Transmission Date: 20210113
  Serious: Yes (Hospitalization, Other)
  Sender: FDA-Public Use
  Company Number: US-GILEAD-2020-0492905

PATIENT
  Sex: Male
  Weight: 89.39 kg

DRUGS (9)
  1. VITAMIN D3 [Concomitant]
     Active Substance: CHOLECALCIFEROL
     Dosage: UNK
  2. FLUCONAZOLE. [Concomitant]
     Active Substance: FLUCONAZOLE
  3. VITAMIN B12 [Concomitant]
     Active Substance: CYANOCOBALAMIN
  4. VALACYCLOVIR [Concomitant]
     Active Substance: VALACYCLOVIR HYDROCHLORIDE
  5. SUCRALFATE. [Concomitant]
     Active Substance: SUCRALFATE
  6. FAMOTIDINE. [Concomitant]
     Active Substance: FAMOTIDINE
  7. LORATADINE. [Concomitant]
     Active Substance: LORATADINE
  8. TRIAMCINOLONE [Concomitant]
     Active Substance: TRIAMCINOLONE
  9. KTE-X19 [Suspect]
     Active Substance: AXICABTAGENE CILOLEUCEL
     Indication: MANTLE CELL LYMPHOMA
     Dosage: UNK
     Route: 065
     Dates: start: 20200817, end: 20200817

REACTIONS (2)
  - Immune effector cell-associated neurotoxicity syndrome [Recovered/Resolved]
  - Cytokine release syndrome [Recovered/Resolved]

NARRATIVE: CASE EVENT DATE: 202008
